FAERS Safety Report 8823977 (Version 1)
Quarter: 2012Q4

REPORT INFORMATION
  Report Type: 
  Country: BR (occurrence: BR)
  Receive Date: 20121003
  Receipt Date: 20121003
  Transmission Date: 20130627
  Serious: Yes (Hospitalization)
  Sender: FDA-Public Use
  Company Number: BR-009507513-1210BRA000254

PATIENT
  Age: 68 None
  Sex: Male
  Weight: 75 kg

DRUGS (7)
  1. VICTRELIS [Suspect]
     Indication: HEPATITIS C
     Dosage: UNK
     Route: 048
     Dates: start: 20120220, end: 20120908
  2. REBETOL [Suspect]
     Indication: HEPATITIS C
     Dosage: 4 mg, qd
     Route: 048
  3. INTERFERON (UNSPECIFIED) [Concomitant]
     Indication: HEPATITIS C
     Dosage: 180 Microgram, UNK
  4. INTERFERON (UNSPECIFIED) [Concomitant]
     Dosage: 90 mg, UNK
  5. PROPRANOLOL HYDROCHLORIDE [Concomitant]
     Indication: HYPERTENSION
     Dosage: 10 mg, UNK
  6. ALDACTONE TABLETS [Concomitant]
     Indication: DIURETIC THERAPY
     Dosage: 50 mg, qd
  7. GLIFAGE XR [Concomitant]
     Indication: DIABETES MELLITUS

REACTIONS (11)
  - Gastrointestinal infection [Recovered/Resolved]
  - Anaemia [Recovered/Resolved]
  - Leukopenia [Recovered/Resolved]
  - Platelet count decreased [Recovered/Resolved]
  - Pruritus [Recovered/Resolved]
  - Hypotension [Recovered/Resolved]
  - Oedema peripheral [Recovered/Resolved]
  - Pleural effusion [Recovered/Resolved]
  - Blood glucose increased [Recovered/Resolved]
  - Nasal discomfort [Recovered/Resolved]
  - Underdose [Unknown]
